FAERS Safety Report 8924723 (Version 1)
Quarter: 2012Q4

REPORT INFORMATION
  Report Type: Spontaneous
  Country: US (occurrence: None)
  Receive Date: 20121116
  Receipt Date: 20121116
  Transmission Date: 20130627
  Serious: Yes (Life-Threatening, Other)
  Sender: FDA-Public Use
  Company Number: 001399596A

PATIENT
  Age: 64 Year
  Sex: Female

DRUGS (9)
  1. PROACTIV RENEWING CLEANSER [Suspect]
     Indication: ACNE
     Dosage: Twice daily dermal
     Dates: start: 20120922, end: 20120925
  2. PROACTIV REPAIRING TREATMENT [Suspect]
     Indication: ACNE
     Dosage: Twice daily dermal
     Dates: start: 20120922, end: 20120925
  3. PROACTIV REFINING MASK [Suspect]
     Indication: ACNE
     Dosage: Twice daily dermal
     Dates: start: 20120922, end: 20120925
  4. ADVAIR [Concomitant]
  5. NIACIN [Concomitant]
  6. CHOLESTORCARE [Concomitant]
  7. NEURONTIN [Concomitant]
  8. SULFA MEDICATION [Concomitant]
  9. PARKINSON^S MEDICATION [Concomitant]

REACTIONS (5)
  - Eye swelling [None]
  - Nasal oedema [None]
  - Swollen tongue [None]
  - Pharyngeal oedema [None]
  - Dyspnoea [None]
